FAERS Safety Report 10376605 (Version 1)
Quarter: 2014Q3

REPORT INFORMATION
  Report Type: Spontaneous
  Country: US (occurrence: None)
  Receive Date: 20140807
  Receipt Date: 20140807
  Transmission Date: 20150326
  Serious: Yes (Hospitalization)
  Sender: FDA-Public Use
  Company Number: HA14-293-AE

PATIENT
  Age: 63 Year
  Sex: Female
  Weight: 82.56 kg

DRUGS (7)
  1. SOMA [Concomitant]
     Active Substance: CARISOPRODOL
  2. PREGABALIN. [Concomitant]
     Active Substance: PREGABALIN
  3. ALPRAZOLAM. [Concomitant]
     Active Substance: ALPRAZOLAM
  4. GABAPENTIN. [Suspect]
     Active Substance: GABAPENTIN
     Indication: PAIN
     Dosage: 1 CAPSULE A DAY, ORAL
     Route: 048
     Dates: start: 20140701, end: 20140720
  5. VALIUM [Concomitant]
     Active Substance: DIAZEPAM
  6. OXYCODONE [Concomitant]
     Active Substance: OXYCODONE
  7. FISH OIL [Concomitant]
     Active Substance: FISH OIL

REACTIONS (7)
  - Back pain [None]
  - Pain in extremity [None]
  - Muscle spasms [None]
  - Transient ischaemic attack [None]
  - Muscular weakness [None]
  - Drug ineffective [None]
  - Middle insomnia [None]
